FAERS Safety Report 9998010 (Version 1)
Quarter: 2014Q1

REPORT INFORMATION
  Report Type: Spontaneous
  Country: US (occurrence: US)
  Receive Date: 20140311
  Receipt Date: 20140311
  Transmission Date: 20141002
  Serious: Yes (Other)
  Sender: FDA-Public Use
  Company Number: PHHY2014US029455

PATIENT
  Sex: Male

DRUGS (1)
  1. METOPROLOL [Suspect]
     Dosage: UNK UKN, UNK

REACTIONS (3)
  - Leukaemia [Unknown]
  - Heart rate decreased [Unknown]
  - Local swelling [Unknown]
